FAERS Safety Report 16701884 (Version 1)
Quarter: 2019Q3

REPORT INFORMATION
  Report Type: Spontaneous
  Country: CO (occurrence: CO)
  Receive Date: 20190719
  Receipt Date: 20190719
  Transmission Date: 20191004
  Serious: No
  Sender: FDA-Public Use
  Company Number: None

PATIENT
  Age: 33 Year
  Sex: Female
  Weight: 78 kg

DRUGS (3)
  1. MEDROL [Concomitant]
     Active Substance: METHYLPREDNISOLONE
  2. ETIDOXINA 100 DOXICICLINA 100MG [Suspect]
     Active Substance: DOXYCYCLINE
     Indication: NASAL POLYPS
     Route: 048
     Dates: start: 20190715, end: 20190717
  3. CEBION [Concomitant]

REACTIONS (4)
  - Vulvovaginal pruritus [None]
  - Erythema [None]
  - Pruritus [None]
  - Eye pruritus [None]

NARRATIVE: CASE EVENT DATE: 20190717
